FAERS Safety Report 8492351-9 (Version None)
Quarter: 2012Q2

REPORT INFORMATION
  Report Type: 
  Country: None (occurrence: None)
  Receive Date: 20120629
  Receipt Date: 20120629
  Transmission Date: 20120825
  Serious: No
  Sender: FDA-Public Use
  Company Number: None

PATIENT
  Age: 63 Year
  Sex: Female

DRUGS (17)
  1. REVLIMID [Suspect]
     Indication: DIFFUSE LARGE B-CELL LYMPHOMA
     Dosage: 25 MG DAILYX28D ORAL
     Route: 048
     Dates: start: 20120516, end: 20120612
  2. HYDROCODONE BITARTRATE + ACETAMINOPHEN [Concomitant]
  3. ESCITALOPRAM [Concomitant]
  4. CHOLECALCIFEROL [Concomitant]
  5. GABAPENTIN [Concomitant]
  6. HYDROCORTISONE [Concomitant]
  7. BARIUM SULFATE [Concomitant]
  8. LORATADINE AND PSEUDOEPHEDRINE SULFATE [Concomitant]
  9. VITAMIN D [Concomitant]
  10. ERGOCALCIFEROL [Concomitant]
  11. ASPIRIN [Concomitant]
  12. REVLIMID [Suspect]
     Dosage: 25 MG DAILY21D,7 D ORAL
     Route: 048
     Dates: start: 20120620
  13. MORPHINE [Concomitant]
  14. OMEPRAZOLE [Concomitant]
  15. ONDANSETRON [Concomitant]
  16. LORAZEPAM [Concomitant]
  17. VIT D2 [Concomitant]

REACTIONS (4)
  - NEUTROPHIL COUNT DECREASED [None]
  - DIZZINESS [None]
  - RASH PRURITIC [None]
  - DIARRHOEA [None]
